FAERS Safety Report 14534175 (Version 2)
Quarter: 2020Q4

REPORT INFORMATION
  Report Type: Spontaneous
  Country: US (occurrence: US)
  Receive Date: 20180215
  Receipt Date: 20201216
  Transmission Date: 20210113
  Serious: Yes (Other)
  Sender: FDA-Public Use
  Company Number: US-ROCHE-2071463

PATIENT
  Sex: Female
  Weight: 118.04 kg

DRUGS (14)
  1. TYLENOL [Concomitant]
     Active Substance: ACETAMINOPHEN
  2. SINGULAIR [Concomitant]
     Active Substance: MONTELUKAST SODIUM
  3. LYRICA [Concomitant]
     Active Substance: PREGABALIN
  4. CITALOPRAM [Concomitant]
     Active Substance: CITALOPRAM HYDROBROMIDE
  5. ALBUTEROL. [Concomitant]
     Active Substance: ALBUTEROL
     Dosage: AS NEEDED
  6. METHOTREXATE. [Concomitant]
     Active Substance: METHOTREXATE
  7. DYCLONE [Concomitant]
     Active Substance: DYCLONINE HYDROCHLORIDE
     Dosage: AS NEEDED
  8. PREDNISONE. [Concomitant]
     Active Substance: PREDNISONE
  9. XOLAIR [Suspect]
     Active Substance: OMALIZUMAB
     Indication: ASTHMA
     Route: 058
     Dates: start: 20050101
  10. APRI [Concomitant]
     Active Substance: DESOGESTREL\ETHINYL ESTRADIOL
  11. ZYRTEC (UNITED STATES) [Concomitant]
  12. XOLAIR [Suspect]
     Active Substance: OMALIZUMAB
     Indication: BLOOD IMMUNOGLOBULIN E INCREASED
     Route: 058
     Dates: start: 2005
  13. VENTOLIN [Concomitant]
     Active Substance: ALBUTEROL SULFATE
     Dosage: 250 50 ONCE A DAY
  14. BENADRYL [Concomitant]
     Active Substance: DIPHENHYDRAMINE HYDROCHLORIDE
     Dosage: AS NEEDED

REACTIONS (11)
  - Back pain [Not Recovered/Not Resolved]
  - Muscular weakness [Not Recovered/Not Resolved]
  - Malaise [Unknown]
  - Ill-defined disorder [Not Recovered/Not Resolved]
  - Pericarditis [Recovered/Resolved]
  - Weight increased [Unknown]
  - Needle track marks [Unknown]
  - Hypersensitivity [Unknown]
  - Arthralgia [Not Recovered/Not Resolved]
  - Drug ineffective [Unknown]
  - Cyst [Unknown]

NARRATIVE: CASE EVENT DATE: 2015
